FAERS Safety Report 9482079 (Version 1)
Quarter: 2013Q3

REPORT INFORMATION
  Report Type: Spontaneous
  Country: GR (occurrence: GR)
  Receive Date: 20130828
  Receipt Date: 20130828
  Transmission Date: 20140515
  Serious: Yes (Other)
  Sender: FDA-Public Use
  Company Number: GR-UCBSA-096225

PATIENT
  Age: 39 Year
  Sex: 0

DRUGS (1)
  1. XOZAL [Suspect]
     Indication: RHINITIS ALLERGIC
     Route: 048
     Dates: start: 201212, end: 201212

REACTIONS (2)
  - Red blood cell count decreased [Recovered/Resolved]
  - Haematocrit decreased [Recovered/Resolved]
